FAERS Safety Report 5489854-8 (Version None)
Quarter: 2007Q4

REPORT INFORMATION
  Report Type: 
  Country: None (occurrence: None)
  Receive Date: 20071018
  Receipt Date: 20071006
  Transmission Date: 20080405
  Serious: Yes (Other)
  Sender: FDA-Public Use
  Company Number: US-PFIZER INC-2007085212

PATIENT
  Sex: Female
  Weight: 79.545 kg

DRUGS (5)
  1. CHANTIX [Suspect]
     Indication: SMOKING CESSATION THERAPY
     Dosage: TEXT:EVERYDAY
     Dates: start: 20070101, end: 20070901
  2. METFORMIN HYDROCHLORIDE/SITAGLIPTIN [Concomitant]
  3. EXCEDRIN (MIGRAINE) [Concomitant]
  4. CRANBERRY [Concomitant]
  5. MOTRIN [Concomitant]

REACTIONS (5)
  - BLOOD CHOLESTEROL INCREASED [None]
  - HEPATIC CIRRHOSIS [None]
  - HEPATOMEGALY [None]
  - NEPHROLITHIASIS [None]
  - URINARY TRACT INFECTION [None]
